FAERS Safety Report 19593007 (Version 2)
Quarter: 2021Q3

REPORT INFORMATION
  Report Type: Spontaneous
  Country: US (occurrence: US)
  Receive Date: 20210722
  Receipt Date: 20210722
  Transmission Date: 20211014
  Serious: Yes (Other)
  Sender: FDA-Public Use
  Company Number: US-MDD US OPERATIONS-SUP202106-001184

PATIENT
  Age: 7 Year
  Sex: Male

DRUGS (2)
  1. QELBREE [Suspect]
     Active Substance: VILOXAZINE HYDROCHLORIDE
     Indication: ATTENTION DEFICIT HYPERACTIVITY DISORDER
     Dosage: 200 MG
  2. CLONIDINE ER [Concomitant]
     Active Substance: CLONIDINE
     Indication: PRODUCT USED FOR UNKNOWN INDICATION
     Dosage: NOT PROVIDED
     Dates: start: 20210609

REACTIONS (6)
  - Weight decreased [Unknown]
  - Suicidal ideation [Unknown]
  - Anger [Unknown]
  - Intentional self-injury [Unknown]
  - Decreased appetite [Unknown]
  - Irritability [Unknown]
